FAERS Safety Report 18342015 (Version 1)
Quarter: 2020Q4

REPORT INFORMATION
  Report Type: Other
  Country: FR (occurrence: FR)
  Receive Date: 20201005
  Receipt Date: 20201005
  Transmission Date: 20210113
  Serious: Yes (Other)
  Sender: FDA-Public Use
  Company Number: FR-INVENTIA-000042

PATIENT
  Age: 24 Year
  Sex: Female

DRUGS (10)
  1. NORDAZEPAM [Suspect]
     Active Substance: NORDAZEPAM
     Indication: PRODUCT USED FOR UNKNOWN INDICATION
  2. LOXAPINE. [Suspect]
     Active Substance: LOXAPINE
     Indication: PRODUCT USED FOR UNKNOWN INDICATION
  3. TROPATEPINE [Concomitant]
     Active Substance: TROPATEPINE
     Indication: SCHIZOPHRENIA
  4. TEMAZEPAM. [Suspect]
     Active Substance: TEMAZEPAM
     Indication: PRODUCT USED FOR UNKNOWN INDICATION
  5. RISPERIDONE. [Concomitant]
     Active Substance: RISPERIDONE
     Indication: SCHIZOPHRENIA
  6. PALIPERIDONE. [Suspect]
     Active Substance: PALIPERIDONE
     Indication: PRODUCT USED FOR UNKNOWN INDICATION
  7. DIAZEPAM. [Suspect]
     Active Substance: DIAZEPAM
     Indication: PRODUCT USED FOR UNKNOWN INDICATION
  8. OXAZEPAM. [Suspect]
     Active Substance: OXAZEPAM
     Indication: PRODUCT USED FOR UNKNOWN INDICATION
  9. PROPRANOLOL [Suspect]
     Active Substance: PROPRANOLOL HYDROCHLORIDE
     Indication: TACHYCARDIA
  10. LORMETAZEPAM [Concomitant]
     Active Substance: LORMETAZEPAM
     Indication: SCHIZOPHRENIA

REACTIONS (10)
  - Subdural haematoma [Unknown]
  - Head injury [Unknown]
  - Altered state of consciousness [Unknown]
  - Skull fracture [Unknown]
  - Drug level below therapeutic [Unknown]
  - Respiratory depression [Unknown]
  - Orthostatic hypotension [Unknown]
  - Subarachnoid haemorrhage [Unknown]
  - Fall [Unknown]
  - Costal cartilage fracture [Unknown]
